FAERS Safety Report 4373346-3 (Version None)
Quarter: 2004Q2

REPORT INFORMATION
  Report Type: 
  Country: None (occurrence: None)
  Receive Date: 20040603
  Receipt Date: 20040518
  Transmission Date: 20050107
  Serious: Yes (Other)
  Sender: FDA-Public Use
  Company Number: BLOC000309

PATIENT
  Age: 49 Year
  Sex: Female
  Weight: 56.6996 kg

DRUGS (3)
  1. MYOBLOC [Suspect]
     Indication: DYSTONIA
     Dosage: 7500 U INTRAMUSCULAR
     Route: 030
     Dates: start: 20010430, end: 20010430
  2. VALIUM [Concomitant]
  3. FIORINAL [Concomitant]

REACTIONS (12)
  - ABDOMINAL DISTENSION [None]
  - CONSTIPATION [None]
  - DRUG INEFFECTIVE [None]
  - DYSPEPSIA [None]
  - DYSPHAGIA [None]
  - FATIGUE [None]
  - FEAR [None]
  - GASTRIC ULCER [None]
  - GASTROOESOPHAGEAL REFLUX DISEASE [None]
  - MUSCULAR WEAKNESS [None]
  - OESOPHAGEAL ULCER [None]
  - WEIGHT DECREASED [None]
